FAERS Safety Report 7359877-2 (Version None)
Quarter: 2011Q1

REPORT INFORMATION
  Report Type: 
  Country: None (occurrence: None)
  Receive Date: 20110317
  Receipt Date: 20110304
  Transmission Date: 20110831
  Serious: Yes (Hospitalization)
  Sender: FDA-Public Use
  Company Number: US-AMGEN-USACT2011012487

PATIENT
  Sex: Male
  Weight: 56.6 kg

DRUGS (3)
  1. PANITUMUMAB [Suspect]
     Indication: OESOPHAGEAL ADENOCARCINOMA
     Dosage: 6 MG/KG, UNK
     Dates: start: 20101130
  2. CISPLATIN [Suspect]
     Indication: OESOPHAGEAL ADENOCARCINOMA
     Dosage: 40 MG/M2, UNK
     Dates: start: 20101130
  3. DOCETAXEL [Suspect]
     Indication: OESOPHAGEAL ADENOCARCINOMA
     Dosage: 40 MG/M2, UNK
     Dates: start: 20101130

REACTIONS (1)
  - OESOPHAGITIS [None]
